FAERS Safety Report 8803560 (Version 1)
Quarter: 2012Q4

REPORT INFORMATION
  Report Type: 
  Country: US (occurrence: US)
  Receive Date: 20120924
  Receipt Date: 20120924
  Transmission Date: 20130627
  Serious: Yes (Other)
  Sender: FDA-Public Use
  Company Number: US-009507513-1208USA007233

PATIENT
  Sex: Male

DRUGS (4)
  1. VICTRELIS [Suspect]
     Indication: HEPATITIS C
     Dosage: UNK
     Dates: start: 20110914
  2. RIBASPHERE [Suspect]
     Indication: HEPATITIS C
     Dosage: 1200 mg, UNK
     Dates: start: 20110817
  3. RIBASPHERE [Suspect]
     Dosage: 800 mg, UNK
     Dates: start: 20110817
  4. PEGINTERFERON ALFA-2A [Suspect]
     Indication: HEPATITIS C
     Dosage: 180 Microgram, qw
     Dates: start: 20110817

REACTIONS (6)
  - Diarrhoea [Unknown]
  - Anaemia [Not Recovered/Not Resolved]
  - Fatigue [Unknown]
  - Dry mouth [Unknown]
  - Depression [Unknown]
  - Dizziness [Unknown]
